FAERS Safety Report 10190405 (Version 1)
Quarter: 2014Q2

REPORT INFORMATION
  Report Type: Spontaneous
  Country: IT (occurrence: IT)
  Receive Date: 20140522
  Receipt Date: 20140522
  Transmission Date: 20141212
  Serious: Yes (Hospitalization)
  Sender: FDA-Public Use
  Company Number: IT-MYLANLABS-2014S1011311

PATIENT
  Age: 5 Year
  Sex: Male

DRUGS (1)
  1. CETIRIZINE HYDROCHLORIDE [Suspect]
     Indication: RHINITIS ALLERGIC
     Dosage: 0.5 MG/KG DAILY
     Route: 048
     Dates: start: 20140408, end: 20140417

REACTIONS (2)
  - Incorrect dose administered [Recovered/Resolved]
  - Tachycardia [Recovered/Resolved]
